FAERS Safety Report 6969164-X (Version None)
Quarter: 2010Q3

REPORT INFORMATION
  Report Type: 
  Country: None (occurrence: None)
  Receive Date: 20100907
  Receipt Date: 20100825
  Transmission Date: 20110219
  Serious: Yes (Other)
  Sender: FDA-Public Use
  Company Number: PHHY2010FR13672

PATIENT
  Sex: Female
  Weight: 66 kg

DRUGS (1)
  1. ZOLEDRONIC [Suspect]
     Indication: OSTEOPOROSIS
     Dosage: 5 MG
     Dates: start: 20091115

REACTIONS (3)
  - ANKYLOSING SPONDYLITIS [None]
  - MYALGIA [None]
  - VOMITING [None]
